FAERS Safety Report 17859439 (Version 1)
Quarter: 2020Q2

REPORT INFORMATION
  Report Type: Spontaneous
  Country: UM (occurrence: UM)
  Receive Date: 20200513
  Receipt Date: 20200513
  Transmission Date: 20200714
  Serious: Yes (Other)
  Sender: FDA-Public Use
  Company Number: T20-002

PATIENT
  Sex: Female

DRUGS (1)
  1. PRE-PEN [Suspect]
     Active Substance: BENZYLPENICILLOYL POLYLYSINE
     Indication: ALLERGY TEST
     Dosage: 6.0 X 10E-5 M TWICE SCRATCH AND INTRA-DERMAL
     Route: 023

REACTIONS (5)
  - Feeling hot [None]
  - Erythema [None]
  - Skin disorder [None]
  - Maternal exposure during pregnancy [None]
  - Foetal exposure during pregnancy [None]
